FAERS Safety Report 19712937 (Version 1)
Quarter: 2021Q3

REPORT INFORMATION
  Report Type: Report from Study
  Country: US (occurrence: US)
  Receive Date: 20210817
  Receipt Date: 20210817
  Transmission Date: 20211014
  Serious: Yes (Other)
  Sender: FDA-Public Use
  Company Number: US-JAZZ-2021-US-005321

PATIENT
  Sex: Female

DRUGS (1)
  1. XYREM [Suspect]
     Active Substance: SODIUM OXYBATE
     Indication: HYPERSOMNIA
     Dosage: 20 GRAMS, QID
     Route: 048

REACTIONS (9)
  - Appetite disorder [Unknown]
  - Irritability [Unknown]
  - Anxiety [Unknown]
  - Memory impairment [Unknown]
  - Off label use [Unknown]
  - Disturbance in attention [Unknown]
  - Anger [Unknown]
  - Suicidal ideation [Unknown]
  - Depression [Unknown]
